FAERS Safety Report 24858320 (Version 2)
Quarter: 2025Q1

REPORT INFORMATION
  Report Type: Spontaneous
  Country: US (occurrence: US)
  Receive Date: 20250117
  Receipt Date: 20250130
  Transmission Date: 20250409
  Serious: Yes (Hospitalization)
  Sender: MERCK
  Company Number: US-009507513-2410USA010074

PATIENT
  Age: 69 Year
  Sex: Female

DRUGS (8)
  1. KEYTRUDA [Suspect]
     Active Substance: PEMBROLIZUMAB
     Indication: Squamous cell carcinoma of skin
  2. REGLAN [Concomitant]
     Active Substance: METOCLOPRAMIDE HYDROCHLORIDE
  3. MUCINEX [Concomitant]
     Active Substance: GUAIFENESIN
  4. LEXAPRO [Concomitant]
     Active Substance: ESCITALOPRAM OXALATE
  5. VITAMIN D3 [Concomitant]
     Active Substance: CHOLECALCIFEROL
  6. TRAMADOL [Concomitant]
     Active Substance: TRAMADOL
  7. ZOFRAN [Concomitant]
     Active Substance: ONDANSETRON HYDROCHLORIDE
  8. XANAX [Concomitant]
     Active Substance: ALPRAZOLAM

REACTIONS (6)
  - Drain site complication [Unknown]
  - Fistula [Unknown]
  - Fistula discharge [Unknown]
  - Catheter placement [Unknown]
  - Wound dehiscence [Unknown]
  - Alopecia [Not Recovered/Not Resolved]
